FAERS Safety Report 5015814-7 (Version None)
Quarter: 2006Q2

REPORT INFORMATION
  Report Type: 
  Country: None (occurrence: None)
  Receive Date: 20060426
  Receipt Date: 20051018
  Transmission Date: 20061013
  Serious: No
  Sender: FDA-Public Use
  Company Number: US154853

PATIENT
  Age: 68 Year
  Sex: Female

DRUGS (1)
  1. SENSIPAR [Suspect]
     Indication: HYPERPARATHYROIDISM SECONDARY
     Dosage: 90 MG, 1 IN  1 DAYS, PO
     Route: 048
     Dates: start: 20050101

REACTIONS (2)
  - BLOOD ALKALINE PHOSPHATASE INCREASED [None]
  - GAMMA-GLUTAMYLTRANSFERASE INCREASED [None]
